FAERS Safety Report 9376540 (Version 1)
Quarter: 2013Q3

REPORT INFORMATION
  Report Type: Spontaneous
  Country: US (occurrence: US)
  Receive Date: 20130701
  Receipt Date: 20130701
  Transmission Date: 20140515
  Serious: No
  Sender: FDA-Public Use
  Company Number: US-PFIZER INC-2013194447

PATIENT
  Age: 77 Year
  Sex: Female
  Weight: 61.22 kg

DRUGS (8)
  1. LYRICA [Suspect]
     Indication: NEUROPATHY PERIPHERAL
     Dosage: TWO 75 MG CAPSULES ORALLY DAILY AT BED TIME
     Route: 048
     Dates: end: 201305
  2. LYRICA [Suspect]
     Indication: NEUROPATHY PERIPHERAL
  3. CLARITIN [Suspect]
     Indication: VISION BLURRED
     Dosage: 10 MG, 1X/DAY
  4. CLARITIN [Suspect]
     Indication: DRY EYE
  5. ALLEGRA [Suspect]
     Indication: VISION BLURRED
     Dosage: 180 MG, 1X/DAY
  6. ALLEGRA [Suspect]
     Indication: DRY EYE
  7. ZYRTEC [Suspect]
     Indication: VISION BLURRED
     Dosage: 10 MG, 1X/DAY
     Dates: start: 2013
  8. ZYRTEC [Suspect]
     Indication: DRY EYE

REACTIONS (3)
  - Vision blurred [Not Recovered/Not Resolved]
  - Dry eye [Not Recovered/Not Resolved]
  - Drug ineffective [Unknown]
